FAERS Safety Report 21305632 (Version 6)
Quarter: 2023Q2

REPORT INFORMATION
  Report Type: Report from Study
  Country: FR (occurrence: FR)
  Receive Date: 20220908
  Receipt Date: 20230525
  Transmission Date: 20230722
  Serious: Yes (Other)
  Sender: FDA-Public Use
  Company Number: FR-PFIZER INC-202201095589

PATIENT
  Age: 27 Year
  Sex: Male

DRUGS (11)
  1. ALPRAZOLAM [Suspect]
     Active Substance: ALPRAZOLAM
     Indication: Product used for unknown indication
     Dosage: UNK
     Route: 065
  2. ALPRAZOLAM [Suspect]
     Active Substance: ALPRAZOLAM
     Indication: Suicide attempt
  3. LORATADINE [Suspect]
     Active Substance: LORATADINE
     Indication: Product used for unknown indication
     Dosage: UNK
     Route: 065
     Dates: end: 20220627
  4. LORATADINE [Suspect]
     Active Substance: LORATADINE
     Indication: Suicide attempt
  5. CYPROTERONE ACETATE [Suspect]
     Active Substance: CYPROTERONE ACETATE
     Indication: Transgender hormonal therapy
     Dosage: 30 MILLIGRAM, ONCE A DAY
     Route: 065
  6. CYPROTERONE ACETATE [Suspect]
     Active Substance: CYPROTERONE ACETATE
     Dosage: 35 MILLIGRAM, ONCE A DAY (35 MILLIGRAM DAILY)
     Route: 065
  7. ESTRADIOL [Suspect]
     Active Substance: ESTRADIOL
     Indication: Transgender hormonal therapy
     Dosage: UNK
     Route: 065
  8. SPIRAMYCIN [Suspect]
     Active Substance: SPIRAMYCIN
     Indication: Product used for unknown indication
     Dosage: UNK
     Route: 065
  9. SPIRAMYCIN [Suspect]
     Active Substance: SPIRAMYCIN
     Indication: Suicide attempt
  10. ESTRADIOL [Concomitant]
     Active Substance: ESTRADIOL
     Indication: Product used for unknown indication
     Dosage: 0.1% ESTRADIOL GEL
     Route: 065
  11. CYPROTERONE ACETATE [Concomitant]
     Active Substance: CYPROTERONE ACETATE
     Indication: Product used for unknown indication
     Dosage: 30 MILLIGRAM, ONCE A DAY
     Route: 065

REACTIONS (4)
  - Hepatitis [Recovered/Resolved]
  - Suicide attempt [Recovered/Resolved]
  - Intentional overdose [Recovered/Resolved]
  - Toxicity to various agents [Recovered/Resolved]
